FAERS Safety Report 6609020-X (Version None)
Quarter: 2010Q1

REPORT INFORMATION
  Report Type: 
  Country: None (occurrence: None)
  Receive Date: 20100301
  Receipt Date: 20100217
  Transmission Date: 20100710
  Serious: Yes (Death, Other)
  Sender: FDA-Public Use
  Company Number: US-ELI_LILLY_AND_COMPANY-US201002005524

PATIENT
  Age: 60 Year
  Sex: Female

DRUGS (4)
  1. CYMBALTA [Suspect]
  2. OLANZAPINE [Suspect]
  3. ZOLPIDEM [Concomitant]
  4. CODEINE W/PARACETAMOL [Concomitant]

REACTIONS (1)
  - COMPLETED SUICIDE [None]
